FAERS Safety Report 8798286 (Version 5)
Quarter: 2014Q2

REPORT INFORMATION
  Report Type: Report from Study
  Country: US (occurrence: US)
  Receive Date: 20120920
  Receipt Date: 20140630
  Transmission Date: 20141212
  Serious: Yes (Congenital Anomaly, Other)
  Sender: FDA-Public Use
  Company Number: US-TEVA-359679USA

PATIENT
  Sex: 0

DRUGS (6)
  1. LAMIVUDINE AND ZIDOVUDINE [Suspect]
     Indication: HIV INFECTION
     Dosage: 2 UNKNOWN DAILY; COURSE ONE
     Route: 048
     Dates: start: 20120810, end: 20130621
  2. LAMIVUDINE AND ZIDOVUDINE [Suspect]
     Indication: LYMPHADENOPATHY
     Dosage: 900 MILLIGRAM DAILY; COURSE 3
     Route: 048
     Dates: start: 20130624
  3. KALETRA [Suspect]
     Indication: HIV INFECTION
     Dosage: 4 UNKNOWN DAILY; COURCE ONE
     Route: 065
     Dates: start: 20120810
  4. KALETRA [Suspect]
     Indication: LYMPHADENOPATHY
  5. ZIDOVUDINE [Suspect]
     Dosage: COURCE 2
     Route: 048
     Dates: start: 20130621, end: 20130624
  6. LAMIVUDINE [Suspect]
     Dosage: 300 MILLIGRAM DAILY; COURSE 2
     Route: 048
     Dates: start: 20130621, end: 20130624

REACTIONS (4)
  - Arnold-Chiari malformation [Recovered/Resolved]
  - Neural tube defect [Recovered/Resolved]
  - Cerebral dysgenesis [Recovered/Resolved]
  - Abortion induced [Recovered/Resolved]
